FAERS Safety Report 20988535 (Version 1)
Quarter: 2022Q2

REPORT INFORMATION
  Report Type: Spontaneous
  Country: CA (occurrence: CA)
  Receive Date: 20220621
  Receipt Date: 20220621
  Transmission Date: 20220721
  Serious: Yes (Other)
  Sender: FDA-Public Use
  Company Number: CA-BRISTOL-MYERS SQUIBB COMPANY-2022-054346

PATIENT
  Age: 81 Year
  Sex: Female

DRUGS (1)
  1. LENALIDOMIDE [Suspect]
     Active Substance: LENALIDOMIDE
     Indication: Myelodysplastic syndrome
     Dosage: DOSE : 5 MG;     FREQ : 33CAPS/84D
     Route: 048
     Dates: start: 20200121

REACTIONS (3)
  - Neoplasm malignant [Unknown]
  - Haemoglobin decreased [Unknown]
  - Intentional product use issue [Unknown]
